FAERS Safety Report 6212027-8 (Version None)
Quarter: 2009Q2

REPORT INFORMATION
  Report Type: 
  Country: None (occurrence: None)
  Receive Date: 20090602
  Receipt Date: 20090528
  Transmission Date: 20091009
  Serious: No
  Sender: FDA-Public Use
  Company Number: US-B.I. PHARMACEUTICALS,INC./RIDGEFIELD-2009-BP-06181BP

PATIENT
  Age: 83 Year
  Sex: Male
  Weight: 78.93 kg

DRUGS (8)
  1. AGGRENOX [Suspect]
     Indication: TRANSIENT ISCHAEMIC ATTACK
     Dates: start: 20090508, end: 20090509
  2. AGGRENOX [Suspect]
     Indication: HYPOAESTHESIA FACIAL
  3. AGGRENOX [Suspect]
     Indication: PARAESTHESIA
  4. TERAZOSIN HCL [Concomitant]
  5. METOPROLOL TARTRATE [Concomitant]
  6. LISINOPRIL [Concomitant]
  7. CLONAZEPAM [Concomitant]
  8. CLONIDINE [Concomitant]

REACTIONS (4)
  - BLINDNESS [None]
  - NAUSEA [None]
  - VISION BLURRED [None]
  - VOMITING [None]
